FAERS Safety Report 5442705-X (Version None)
Quarter: 2007Q3

REPORT INFORMATION
  Report Type: 
  Country: None (occurrence: None)
  Receive Date: 20070904
  Receipt Date: 20070823
  Transmission Date: 20080115
  Serious: Yes (Other)
  Sender: FDA-Public Use
  Company Number: AU-GILEAD-2007-0012998

PATIENT
  Sex: Male
  Weight: 66.3 kg

DRUGS (5)
  1. VIREAD [Suspect]
     Route: 048
     Dates: start: 20040307, end: 20070622
  2. KALETRA [Concomitant]
     Route: 048
  3. ATAZANAVIR SULFATE [Concomitant]
     Route: 048
  4. ZOLOFT [Concomitant]
     Route: 048
  5. VALTREX [Concomitant]
     Route: 048

REACTIONS (1)
  - FANCONI SYNDROME ACQUIRED [None]
